FAERS Safety Report 5094686-9 (Version None)
Quarter: 2006Q3

REPORT INFORMATION
  Report Type: 
  Country: None (occurrence: None)
  Receive Date: 20060731
  Receipt Date: 20060420
  Transmission Date: 20061208
  Serious: No
  Sender: FDA-Public Use
  Company Number: 2006PV012465

PATIENT
  Age: 53 Year
  Sex: Female

DRUGS (1)
  1. BYETTA [Suspect]
     Indication: DIABETES MELLITUS NON-INSULIN-DEPENDENT
     Dosage: 10 MG;BID;SC
     Route: 058
     Dates: start: 20060201, end: 20060401

REACTIONS (4)
  - DEMENTIA [None]
  - DISORIENTATION [None]
  - FEELING ABNORMAL [None]
  - NAUSEA [None]
